FAERS Safety Report 16884079 (Version 2)
Quarter: 2019Q4

REPORT INFORMATION
  Report Type: Spontaneous
  Country: US (occurrence: US)
  Receive Date: 20191004
  Receipt Date: 20191009
  Transmission Date: 20200122
  Serious: Yes (Hospitalization)
  Sender: FDA-Public Use
  Company Number: US-TEVA-2019-US-1117405

PATIENT
  Age: 77 Year
  Sex: Male

DRUGS (1)
  1. SOTALOL HYDROCHLORIDE. [Suspect]
     Active Substance: SOTALOL HYDROCHLORIDE
     Indication: ATRIAL FIBRILLATION
     Dosage: 180 MG, HALF IN THE MORNING AND HALF IN THE EVENING
     Dates: start: 2004

REACTIONS (2)
  - Supraventricular extrasystoles [Recovering/Resolving]
  - Heart rate irregular [Unknown]
